FAERS Safety Report 9782986 (Version 1)
Quarter: 2013Q4

REPORT INFORMATION
  Report Type: Spontaneous
  Country: US (occurrence: US)
  Receive Date: 20131226
  Receipt Date: 20131226
  Transmission Date: 20140711
  Serious: Yes (Hospitalization)
  Sender: FDA-Public Use
  Company Number: US-ASTRAZENECA-2013SE92781

PATIENT
  Age: 80 Year
  Sex: Female
  Weight: 56.2 kg

DRUGS (5)
  1. SYMBICORT [Suspect]
     Indication: CHRONIC OBSTRUCTIVE PULMONARY DISEASE
     Dosage: 2 PUFFS IN THE MORNING
     Route: 055
     Dates: start: 2011
  2. SYMBICORT [Suspect]
     Indication: CHRONIC OBSTRUCTIVE PULMONARY DISEASE
     Dosage: 160/4.5 MCG, 2 PUFFS BID
     Route: 055
  3. FOSAMAX [Suspect]
     Dosage: NOT REPORTED WEEK
     Route: 065
     Dates: start: 2013
  4. SPIRIVA [Suspect]
     Route: 065
     Dates: start: 2012
  5. ASPIRIN [Concomitant]

REACTIONS (5)
  - Convulsion [Recovered/Resolved]
  - Headache [Recovered/Resolved]
  - Intentional drug misuse [Not Recovered/Not Resolved]
  - Intentional drug misuse [Unknown]
  - Drug ineffective [Recovered/Resolved]
